FAERS Safety Report 9916605 (Version 2)
Quarter: 2014Q1

REPORT INFORMATION
  Report Type: Spontaneous
  Country: JP (occurrence: JP)
  Receive Date: 20140221
  Receipt Date: 20140227
  Transmission Date: 20141002
  Serious: Yes (Hospitalization)
  Sender: FDA-Public Use
  Company Number: PHHY2014JP017491

PATIENT
  Age: 75 Year
  Sex: Female
  Weight: 42.5 kg

DRUGS (8)
  1. LANSOPRAZOLE [Suspect]
     Indication: GASTRITIS EROSIVE
     Dosage: 1 DF, DAILY
     Route: 048
  2. LOSARTAN POTASSIUM+HYDROCHLOROTHIAZIDE [Suspect]
     Dosage: 1 DF, DAILY
  3. URSODEOXYCHOLIC ACID [Concomitant]
     Dosage: 6 DF, TID
  4. AZELNIDIPINE [Concomitant]
     Dosage: 1 DF, UNK
  5. VALSARTAN [Concomitant]
     Dosage: 1 DF, UNK
  6. ALFACALCIDOL [Concomitant]
     Dosage: 2 DF, UNK
  7. RALOXIFENE [Concomitant]
     Dosage: 1 DF, UNK
  8. ACETAMINOPHEN [Concomitant]
     Dosage: 3 DF, TID

REACTIONS (10)
  - Hepatic encephalopathy [Recovered/Resolved]
  - Concomitant disease aggravated [Recovered/Resolved]
  - Diarrhoea [Recovered/Resolved]
  - Weight decreased [Unknown]
  - Hepatic failure [Recovering/Resolving]
  - Gait disturbance [Recovered/Resolved]
  - Altered state of consciousness [Recovered/Resolved]
  - Asterixis [Recovered/Resolved]
  - Hepatic function abnormal [Unknown]
  - Colitis microscopic [Recovered/Resolved]
